FAERS Safety Report 6643386-X (Version None)
Quarter: 2010Q1

REPORT INFORMATION
  Report Type: 
  Country: None (occurrence: None)
  Receive Date: 20100319
  Receipt Date: 20100316
  Transmission Date: 20100710
  Serious: Yes (Life-Threatening)
  Sender: FDA-Public Use
  Company Number: GB-GILEAD-2010-0027765

PATIENT
  Sex: Male
  Weight: 3.3 kg

DRUGS (3)
  1. TRUVADA [Suspect]
     Indication: HIV INFECTION
     Route: 064
     Dates: end: 20100220
  2. ATAZANAVIR [Suspect]
     Indication: HIV INFECTION
     Route: 064
     Dates: end: 20100220
  3. RITONAVIR [Suspect]
     Route: 064
     Dates: end: 20100220

REACTIONS (3)
  - COAGULOPATHY [None]
  - INTRACARDIAC THROMBUS [None]
  - LIVER FUNCTION TEST ABNORMAL [None]
